FAERS Safety Report 15241231 (Version 1)
Quarter: 2018Q3

REPORT INFORMATION
  Report Type: Spontaneous
  Country: US (occurrence: US)
  Receive Date: 20180711
  Receipt Date: 20180711
  Transmission Date: 20181010
  Serious: Yes (Disabling)
  Sender: FDA-Public Use
  Company Number: None

PATIENT
  Age: 69 Year
  Sex: Male
  Weight: 68.04 kg

DRUGS (2)
  1. CREST COMPLETE DEEP CLEAN [Suspect]
     Active Substance: SODIUM FLUORIDE
     Dates: start: 20160704, end: 20171218
  2. SIMVASTATIN. [Concomitant]
     Active Substance: SIMVASTATIN

REACTIONS (2)
  - Ageusia [None]
  - Tongue disorder [None]

NARRATIVE: CASE EVENT DATE: 20170704
